FAERS Safety Report 9028146 (Version 1)
Quarter: 2013Q1

REPORT INFORMATION
  Report Type: Spontaneous
  Country: US (occurrence: None)
  Receive Date: 20130115
  Receipt Date: 20130115
  Transmission Date: 20140127
  Serious: Yes (Other)
  Sender: FDA-Public Use
  Company Number: None

PATIENT
  Age: 53 Year
  Sex: Female
  Weight: 65.32 kg

DRUGS (1)
  1. BILTRICIDE [Suspect]
     Indication: CESTODE INFECTION
     Route: 048
     Dates: start: 20130109, end: 20130109

REACTIONS (6)
  - Pyrexia [None]
  - Hyperhidrosis [None]
  - Vomiting [None]
  - Malaise [None]
  - Fatigue [None]
  - Nausea [None]
